FAERS Safety Report 5959223-2 (Version None)
Quarter: 2008Q4

REPORT INFORMATION
  Report Type: 
  Country: None (occurrence: None)
  Receive Date: 20081120
  Receipt Date: 20080820
  Transmission Date: 20090506
  Serious: No
  Sender: FDA-Public Use
  Company Number: A0743544A

PATIENT
  Sex: Female

DRUGS (2)
  1. WELLBUTRIN SR [Suspect]
     Indication: DRUG USE FOR UNKNOWN INDICATION
     Dosage: 150MG TWICE PER DAY
     Route: 048
  2. BUSPIRONE HCL [Suspect]
     Indication: ANXIETY
     Dosage: 10MG TWICE PER DAY
     Route: 048
     Dates: start: 20080818

REACTIONS (1)
  - ABDOMINAL DISCOMFORT [None]
